FAERS Safety Report 6639548-8 (Version None)
Quarter: 2010Q1

REPORT INFORMATION
  Report Type: 
  Country: None (occurrence: None)
  Receive Date: 20100318
  Receipt Date: 20100309
  Transmission Date: 20100710
  Serious: Yes (Death)
  Sender: FDA-Public Use
  Company Number: CA-ABBOTT-10P-028-0623962-00

PATIENT
  Sex: Male

DRUGS (1)
  1. MAVIK [Suspect]
     Indication: DRUG USE FOR UNKNOWN INDICATION

REACTIONS (4)
  - ALCOHOLISM [None]
  - HYPONATRAEMIA [None]
  - PANCREATITIS ACUTE [None]
  - PNEUMONIA [None]
